FAERS Safety Report 5281615-8 (Version None)
Quarter: 2007Q1

REPORT INFORMATION
  Report Type: 
  Country: None (occurrence: None)
  Receive Date: 20070326
  Receipt Date: 20070313
  Transmission Date: 20070707
  Serious: Yes (Death, Other)
  Sender: FDA-Public Use
  Company Number: 2007-00278

PATIENT
  Age: 58 Year
  Sex: Female

DRUGS (11)
  1. VELCADE [Suspect]
     Indication: MULTIPLE MYELOMA
     Dosage: 1.30 MG/M2
     Dates: start: 20061130, end: 20070119
  2. BAKTAR (SULFAMETHOXAZOLE, TRIMETHOPRIM) [Concomitant]
  3. MAGNESIUM OXIDE (MAGNESIUM OXIDE) [Concomitant]
  4. FENTANYL [Concomitant]
  5. EBRANTIL (URAPIDIL) [Concomitant]
  6. BESACOLIN (BETHANECHOL CHLORIDE) [Concomitant]
  7. RED BLOOD CELLS [Concomitant]
  8. MUCOSOLVAN (AMBROXOL HYDROCHLORIDE) [Concomitant]
  9. ASTOMIN (DIMEMORFAN PHOSPHATE) [Concomitant]
  10. LAC B (LACTOBACILLUS BIFIDUS, LYOPHILIZED) [Concomitant]
  11. EBRANTIL (URAPIDIL) [Concomitant]

REACTIONS (22)
  - ANAEMIA [None]
  - BLOOD ALBUMIN DECREASED [None]
  - BLOOD CALCIUM DECREASED [None]
  - BLOOD CALCIUM INCREASED [None]
  - BLOOD CREATININE INCREASED [None]
  - BLOOD POTASSIUM INCREASED [None]
  - BLOOD SODIUM DECREASED [None]
  - BLOOD URIC ACID INCREASED [None]
  - BRONCHITIS [None]
  - CONDITION AGGRAVATED [None]
  - DEHYDRATION [None]
  - DIARRHOEA [None]
  - FOREIGN BODY TRAUMA [None]
  - INJURY ASPHYXIATION [None]
  - MONOCYTE COUNT DECREASED [None]
  - NEUROPATHY PERIPHERAL [None]
  - OBSTRUCTIVE AIRWAYS DISORDER [None]
  - PLATELET COUNT DECREASED [None]
  - PROTEIN TOTAL DECREASED [None]
  - RESPIRATORY ARREST [None]
  - SPUTUM RETENTION [None]
  - VIRAL UPPER RESPIRATORY TRACT INFECTION [None]
